FAERS Safety Report 14425728 (Version 1)
Quarter: 2018Q1

REPORT INFORMATION
  Report Type: Spontaneous
  Country: US (occurrence: US)
  Receive Date: 20180122
  Receipt Date: 20180122
  Transmission Date: 20180509
  Serious: No
  Sender: FDA-Public Use
  Company Number: None

PATIENT

DRUGS (1)
  1. XYLOCAINE [Suspect]
     Active Substance: LIDOCAINE HYDROCHLORIDE
     Indication: CENTRAL VENOUS CATHETERISATION
     Dosage: ?          OTHER FREQUENCY:ONCE;?
     Route: 023
     Dates: start: 20180119, end: 20180122

REACTIONS (4)
  - Therapy change [None]
  - Product quality issue [None]
  - Sedation [None]
  - Anaesthetic complication [None]

NARRATIVE: CASE EVENT DATE: 20180122
